FAERS Safety Report 15186858 (Version 1)
Quarter: 2018Q3

REPORT INFORMATION
  Report Type: Report from Study
  Country: US (occurrence: US)
  Receive Date: 20180723
  Receipt Date: 20180723
  Transmission Date: 20181010
  Serious: No
  Sender: FDA-Public Use
  Company Number: US-EXELIXIS-CABO-18012187

PATIENT
  Sex: Male

DRUGS (16)
  1. ALPRAZOLAM. [Concomitant]
     Active Substance: ALPRAZOLAM
  2. ACETAMIN [Concomitant]
     Active Substance: ACETAMINOPHEN
  3. CIPROFLOXACIN. [Concomitant]
     Active Substance: CIPROFLOXACIN
  4. CLOBETASOL [Concomitant]
     Active Substance: CLOBETASOL
  5. METOPROLOL. [Concomitant]
     Active Substance: METOPROLOL
  6. TRAMADOL. [Concomitant]
     Active Substance: TRAMADOL
  7. CABOMETYX [Suspect]
     Active Substance: CABOZANTINIB S-MALATE
     Indication: RENAL CANCER
     Dosage: 40 MG, QD
     Route: 048
     Dates: start: 20170628
  8. FLUTICASONE. [Concomitant]
     Active Substance: FLUTICASONE
  9. HYDROCODONE [Concomitant]
     Active Substance: HYDROCODONE
  10. INLYTA [Concomitant]
     Active Substance: AXITINIB
  11. SUTENT [Concomitant]
     Active Substance: SUNITINIB MALATE
  12. LISINOPRIL. [Concomitant]
     Active Substance: LISINOPRIL
  13. PRAVASTATIN. [Concomitant]
     Active Substance: PRAVASTATIN
  14. ACYCLOVIR. [Concomitant]
     Active Substance: ACYCLOVIR
  15. A?HYDROCORT [Concomitant]
     Active Substance: HYDROCORTISONE SODIUM SUCCINATE
  16. NITROGLYCERIN. [Concomitant]
     Active Substance: NITROGLYCERIN

REACTIONS (2)
  - Depressed mood [Unknown]
  - Nausea [Unknown]
